FAERS Safety Report 6234005-5 (Version None)
Quarter: 2009Q2

REPORT INFORMATION
  Report Type: 
  Country: None (occurrence: None)
  Receive Date: 20090616
  Receipt Date: 20090616
  Transmission Date: 20091009
  Serious: Yes (Hospitalization)
  Sender: FDA-Public Use
  Company Number: None

PATIENT
  Age: 67 Year
  Sex: Male
  Weight: 68.0396 kg

DRUGS (1)
  1. VERAMYST [Suspect]
     Indication: MULTIPLE ALLERGIES
     Dosage: ONE OR TWO SPRAYS TWICE A DAY NASAL
     Route: 045
     Dates: start: 20090608, end: 20090609

REACTIONS (6)
  - APHONIA [None]
  - NASAL CONGESTION [None]
  - NASAL SEPTUM ULCERATION [None]
  - NAUSEA [None]
  - OROPHARYNGEAL PAIN [None]
  - SINUS HEADACHE [None]
